FAERS Safety Report 10535195 (Version 5)
Quarter: 2014Q4

REPORT INFORMATION
  Report Type: Spontaneous
  Country: AU (occurrence: AU)
  Receive Date: 20141022
  Receipt Date: 20141219
  Transmission Date: 20150529
  Serious: Yes (Disabling, Other)
  Sender: FDA-Public Use
  Company Number: AU-PFIZER INC-2014280663

PATIENT
  Age: 40 Year
  Sex: Female

DRUGS (1)
  1. PREGABALIN. [Suspect]
     Active Substance: PREGABALIN
     Dosage: 150 MG, 2X/DAY
     Route: 048
     Dates: start: 20130819, end: 20130925

REACTIONS (4)
  - Depression [Unknown]
  - Dissociation [Unknown]
  - Suicidal ideation [Unknown]
  - Panic attack [Unknown]

NARRATIVE: CASE EVENT DATE: 20130911
